FAERS Safety Report 22119607 (Version 1)
Quarter: 2023Q1

REPORT INFORMATION
  Report Type: Other
  Country: None (occurrence: BE)
  Receive Date: 20230321
  Receipt Date: 20230321
  Transmission Date: 20230417
  Serious: Yes (Life-Threatening)
  Sender: FDA-Public Use
  Company Number: BE-B.Braun Medical Inc.-2139323

PATIENT
  Age: 43 Year
  Sex: Male

DRUGS (9)
  1. MAGNESIUM SULFATE IN DEXTROSE [Suspect]
     Active Substance: MAGNESIUM SULFATE
     Indication: Pain management
  2. KETAMINE [Suspect]
     Active Substance: KETAMINE
  3. PROPOFOL [Suspect]
     Active Substance: PROPOFOL
  4. CLONIDINE [Suspect]
     Active Substance: CLONIDINE
  5. ROCURONIUM [Suspect]
     Active Substance: ROCURONIUM BROMIDE
  6. LIDOCAINE [Suspect]
     Active Substance: LIDOCAINE
  7. UNSPECIFIED INGREDIENT [Suspect]
     Active Substance: UNSPECIFIED INGREDIENT
  8. UNSPECIFIED INGREDIENT [Suspect]
     Active Substance: UNSPECIFIED INGREDIENT
  9. DEXAMETHASONE [Suspect]
     Active Substance: DEXAMETHASONE

REACTIONS (2)
  - Off label use [Recovered/Resolved]
  - Cardiac arrest [Recovered/Resolved]
